FAERS Safety Report 5895468-8 (Version None)
Quarter: 2008Q3

REPORT INFORMATION
  Report Type: 
  Country: None (occurrence: None)
  Receive Date: 20080924
  Receipt Date: 20080923
  Transmission Date: 20090109
  Serious: Yes (Disabling, Other)
  Sender: FDA-Public Use
  Company Number: A0748801A

PATIENT
  Age: 59 Year

DRUGS (1)
  1. ALLI [Suspect]
     Route: 048
     Dates: start: 20080101

REACTIONS (6)
  - ADVERSE EVENT [None]
  - FIBROMYALGIA [None]
  - ILL-DEFINED DISORDER [None]
  - INTERVERTEBRAL DISC DEGENERATION [None]
  - MALAISE [None]
  - RHEUMATOID ARTHRITIS [None]
